FAERS Safety Report 4403675-6 (Version None)
Quarter: 2004Q3

REPORT INFORMATION
  Report Type: 
  Country: None (occurrence: None)
  Receive Date: 20040719
  Receipt Date: 20040702
  Transmission Date: 20050211
  Serious: Yes (Hospitalization, Other)
  Sender: FDA-Public Use
  Company Number: 195666

PATIENT
  Age: 75 Year
  Sex: Female

DRUGS (12)
  1. AVONEX [Suspect]
     Indication: MULTIPLE SCLEROSIS
     Dates: start: 20030129, end: 20040323
  2. NEURONTIN [Concomitant]
  3. FOSAMAX [Concomitant]
  4. MACRODANTIN [Concomitant]
  5. EVISTA [Concomitant]
  6. TRAMADOL HCL [Concomitant]
  7. VICODIN [Concomitant]
  8. QUININE [Concomitant]
  9. PROVIGIL [Concomitant]
  10. CALCIUM [Concomitant]
  11. HERBS [Concomitant]
  12. TYLENOL [Concomitant]

REACTIONS (10)
  - ABDOMINAL PAIN [None]
  - ASCITES [None]
  - CYSTITIS [None]
  - GASTRIC DISORDER [None]
  - GASTROINTESTINAL MOTILITY DISORDER [None]
  - HYPOXIA [None]
  - MALIGNANT PLEURAL EFFUSION [None]
  - MALNUTRITION [None]
  - OVARIAN CANCER [None]
  - VOMITING [None]
